FAERS Safety Report 10888799 (Version 1)
Quarter: 2015Q1

REPORT INFORMATION
  Report Type: Spontaneous
  Country: BR (occurrence: BR)
  Receive Date: 20150305
  Receipt Date: 20150305
  Transmission Date: 20150721
  Serious: Yes (Life-Threatening)
  Sender: FDA-Public Use
  Company Number: BR-LUNDBECK-DKLU1109445

PATIENT
  Sex: Male

DRUGS (2)
  1. URBANIL [Suspect]
     Active Substance: CLOBAZAM
     Indication: PRODUCT USED FOR UNKNOWN INDICATION
     Route: 048
  2. URBANIL [Suspect]
     Active Substance: CLOBAZAM
     Route: 048

REACTIONS (2)
  - Malaise [Recovering/Resolving]
  - Seizure [Recovering/Resolving]
